FAERS Safety Report 8265395-X (Version None)
Quarter: 2012Q2

REPORT INFORMATION
  Report Type: 
  Country: None (occurrence: None)
  Receive Date: 20120406
  Receipt Date: 20120402
  Transmission Date: 20120825
  Serious: Yes (Hospitalization, Other)
  Sender: FDA-Public Use
  Company Number: DE-PFIZER INC-2012070644

PATIENT
  Age: 71 Year
  Sex: Female
  Weight: 81.8 kg

DRUGS (9)
  1. LEVOTHYROXINE [Concomitant]
     Indication: BLOOD THYROID STIMULATING HORMONE DECREASED
     Dosage: 50 UG, 1X/DAY
     Dates: start: 20060407
  2. PANTOZOL [Concomitant]
     Indication: ABDOMINAL DISCOMFORT
     Dosage: 40 MG, 1X/DAY
     Dates: start: 20070213
  3. HYDROCORTISONE [Concomitant]
     Indication: BLOOD CORTICOTROPHIN DECREASED
     Dosage: UNK
     Dates: start: 20060827
  4. DESMOPRESSIN [Concomitant]
     Indication: DIABETES INSIPIDUS
  5. DESMOPRESSIN [Concomitant]
     Indication: BLOOD ANTIDIURETIC HORMONE DECREASED
     Dosage: UNK
     Dates: start: 20050112
  6. LEVOTHYROXINE [Concomitant]
     Indication: PRIMARY HYPOTHYROIDISM
  7. MICTONORM [Concomitant]
     Indication: INCONTINENCE
     Dosage: UNK
     Dates: start: 20070213
  8. SOMATROPIN [Suspect]
     Indication: HYPOPITUITARISM
     Dosage: 0.1 MG, 1X/DAY
     Route: 058
     Dates: start: 20050524
  9. HYDROCORTISONE [Concomitant]
     Indication: ADDISON'S DISEASE

REACTIONS (1)
  - CHOLECYSTITIS [None]
